FAERS Safety Report 8004740-7 (Version None)
Quarter: 2011Q4

REPORT INFORMATION
  Report Type: 
  Country: None (occurrence: None)
  Receive Date: 20111220
  Receipt Date: 20111213
  Transmission Date: 20120403
  Serious: Yes (Other)
  Sender: FDA-Public Use
  Company Number: 1000022676

PATIENT
  Age: 73 Year
  Sex: Female
  Weight: 86 kg

DRUGS (15)
  1. VENTOLINE (SALBUTAMOL SULFATE) (INHALANT) (SALBUTAMOL SULFATE) [Concomitant]
  2. ROFLUMILAST (ROFLUMILAST) (500 MICROGRAM, TABLETS) [Suspect]
     Indication: CHRONIC OBSTRUCTIVE PULMONARY DISEASE
     Dosage: 500 MCG (500 MCG, 1 IN 1 D), ORAL
     Route: 048
     Dates: start: 20110501, end: 20110501
  3. FENPROCOUMON (PHENPROCOUMON) (TABLETS) (PHENPROCOUMON) [Concomitant]
  4. ACTONEL (RISEDRONATE SODIUM) (TABLETS) (RISEDRONATE SODIUM) [Concomitant]
  5. OMEPRAZOLE (OMEPRAZOLE) (40 MILLIGRAM, TABLETS) (OMEPRAZOLE) [Concomitant]
  6. PARACETAMOL WITH CODEINE (PARACETAMOL, CODEINE) (TABLETS) (PARACETAMOL [Concomitant]
  7. PRAMIPEXOLE (PRAMIPEXOLE) (0.125 MILLIGRAM, TABLETS) (PRAMIPEXOLE) [Concomitant]
  8. VERAPAMIL (VERAPAMIL) (40 MILLIGRAM, TABLETS) (VERAPAMIL) [Concomitant]
  9. CALCICHEW (CALCIUM CARBONATE) (500 MILLIGRAM, TABLETS) (CALCIUM CARBON [Concomitant]
  10. LANOXIN (DIGOXIN) (TABLETS) (DIGOXIN) [Concomitant]
  11. MAGNESIUM (MAGNESIUM) (TABLETS) (MAGNESIUM) [Concomitant]
  12. SERETIDE (SALMETEROL, FLUTICASONE) (INHALANT) (SALMETEROL, FLUTICASONE [Concomitant]
  13. ROFLUMILAST (ROFLUMILAST) (500 MICROGRAM, TABLETS) [Suspect]
     Indication: CHRONIC OBSTRUCTIVE PULMONARY DISEASE
     Dosage: 500 MCG (500 MCG, 1 IN 1 D), ORAL
     Route: 048
     Dates: start: 20110225, end: 20110301
  14. SPIRIVA (TIOTROPIUM BROMIDE) (INHALANT) (TIOTROPIUM BROMIDE) [Concomitant]
  15. BUMETANIDE (BUMETANIDE) (1 MILLIGRAM, TABLETS) (BUMETANIDE) [Concomitant]

REACTIONS (8)
  - DECREASED APPETITE [None]
  - VOMITING [None]
  - HYPOGEUSIA [None]
  - WEIGHT DECREASED [None]
  - DEPRESSED MOOD [None]
  - DEPRESSION [None]
  - ABDOMINAL PAIN [None]
  - DECREASED INTEREST [None]
